FAERS Safety Report 17331489 (Version 1)
Quarter: 2020Q1

REPORT INFORMATION
  Report Type: Spontaneous
  Country: US (occurrence: US)
  Receive Date: 20200127
  Receipt Date: 20200127
  Transmission Date: 20200409
  Serious: Yes (Death, Life-Threatening, Disabling)
  Sender: FDA-Public Use
  Company Number: None

PATIENT
  Age: 61 Year
  Sex: Female
  Weight: 36 kg

DRUGS (10)
  1. ANORO [Concomitant]
     Active Substance: UMECLIDINIUM BROMIDE\VILANTEROL TRIFENATATE
  2. ZYDIS [Concomitant]
  3. CYCLOBENZAPRINE. [Concomitant]
     Active Substance: CYCLOBENZAPRINE
  4. KEYTRUDA [Suspect]
     Active Substance: PEMBROLIZUMAB
     Indication: NEOPLASM MALIGNANT
     Route: 042
  5. ZYPREXA [Concomitant]
     Active Substance: OLANZAPINE
  6. GABAPENTIN 300 MG [Concomitant]
     Active Substance: GABAPENTIN
  7. PANTROPRAZOLE [Concomitant]
  8. LEVAQUIN [Concomitant]
     Active Substance: LEVOFLOXACIN
  9. TOPROL XL [Concomitant]
     Active Substance: METOPROLOL SUCCINATE
  10. ASPIR-81 [Concomitant]
     Active Substance: ASPIRIN

REACTIONS (6)
  - Pneumonia [None]
  - Muscular weakness [None]
  - Chronic obstructive pulmonary disease [None]
  - Asthenia [None]
  - Gait inability [None]
  - Paralysis [None]

NARRATIVE: CASE EVENT DATE: 20191226
